FAERS Safety Report 19869211 (Version 2)
Quarter: 2021Q3

REPORT INFORMATION
  Report Type: Report from Study
  Country: None (occurrence: AU)
  Receive Date: 20210923
  Receipt Date: 20210929
  Transmission Date: 20211014
  Serious: Yes (Hospitalization, Other)
  Sender: FDA-Public Use
  Company Number: AU-ABBVIE-21K-008-4086880-00

PATIENT
  Age: 69 Year
  Sex: Male

DRUGS (2)
  1. DUODOPA [Suspect]
     Active Substance: CARBIDOPA\LEVODOPA
  2. DUODOPA [Suspect]
     Active Substance: CARBIDOPA\LEVODOPA
     Indication: PARKINSON^S DISEASE
     Dosage: 100 ML GEL CASSETTE
     Route: 050
     Dates: start: 20210305

REACTIONS (5)
  - Agitation [Unknown]
  - Off label use [Unknown]
  - Hip fracture [Unknown]
  - Device dislocation [Unknown]
  - Fall [Unknown]

NARRATIVE: CASE EVENT DATE: 20210919
